FAERS Safety Report 8401456 (Version 3)
Quarter: 2013Q3

REPORT INFORMATION
  Report Type: Report from Study
  Country: US (occurrence: US)
  Receive Date: 20120210
  Receipt Date: 20130916
  Transmission Date: 20140515
  Serious: Yes (Hospitalization, Other)
  Sender: FDA-Public Use
  Company Number: PHEH2012US003099

PATIENT
  Sex: Male
  Weight: 93.88 kg

DRUGS (18)
  1. GILENYA [Suspect]
     Indication: MULTIPLE SCLEROSIS
     Dosage: 0.5 MG, DAILY
     Route: 048
     Dates: start: 201101, end: 201101
  2. OXYCODONE [Concomitant]
     Indication: PAIN
     Dosage: 5 MG, UNK
     Route: 048
  3. MORPHINE [Concomitant]
     Dosage: 15 MG, BID
     Route: 048
  4. METFORMIN [Concomitant]
     Dosage: 500 MG, TID
     Route: 048
  5. INSULIN GLARGINE [Concomitant]
     Dosage: 40 U, UNK
  6. SIMVASTATIN [Concomitant]
     Dosage: 80 MG, UNK
     Route: 048
  7. MODAFINIL [Concomitant]
     Dosage: 200 MG, BID
     Route: 048
  8. CLONAZEPAM [Concomitant]
     Dosage: 1 MG, QD
     Route: 048
  9. LIDOCAINE [Concomitant]
     Dosage: 5 %, PRN
  10. LISINOPRIL [Concomitant]
     Dosage: 40 MG, DAILY
     Route: 048
  11. INSULIN LISPRO [Concomitant]
     Dosage: 100 U/ML, UNK
     Route: 058
  12. CYANOCOBALAMIN [Concomitant]
     Dosage: UNK UKN, UNK
  13. VITAMIN D3 [Concomitant]
     Dosage: 2000 U, UNK
     Route: 048
  14. ASPIRIN [Concomitant]
     Dosage: 81 MG, DAILY
     Route: 048
  15. MULTIVITAMIN AND MINERAL SUPPLEMENT [Concomitant]
     Dosage: UNK UKN, UNK
  16. ALLEGRA [Concomitant]
     Dosage: 180 MG, QHS
  17. ADVAIR [Concomitant]
     Dosage: UNK UKN, UNK
  18. ZESTRIL [Concomitant]
     Dosage: UNK UKN, UNK

REACTIONS (9)
  - Atrioventricular block [Unknown]
  - Heart rate decreased [Recovered/Resolved]
  - Myocardial infarction [Unknown]
  - Blood calcium increased [Unknown]
  - Gliosis [Unknown]
  - Sensory disturbance [Unknown]
  - Cerebellar syndrome [Unknown]
  - Tandem gait test [Unknown]
  - Fatigue [Unknown]
